FAERS Safety Report 5077034-X (Version None)
Quarter: 2006Q3

REPORT INFORMATION
  Report Type: 
  Country: None (occurrence: None)
  Receive Date: 20060807
  Receipt Date: 20060724
  Transmission Date: 20061208
  Serious: Yes (Other)
  Sender: FDA-Public Use
  Company Number: US200607004376

PATIENT
  Age: 80 Year
  Sex: Female

DRUGS (2)
  1. HUMULIN L [Suspect]
     Dosage: 6 U 2/D
     Dates: start: 19910101
  2. ISOPHANE INSULIN [Concomitant]

REACTIONS (8)
  - BASAL CELL CARCINOMA [None]
  - BLOOD GLUCOSE DECREASED [None]
  - DRUG HYPERSENSITIVITY [None]
  - ERYTHEMA OF EYELID [None]
  - EYELID FUNCTION DISORDER [None]
  - EYELID PAIN [None]
  - IMPAIRED HEALING [None]
  - VISUAL ACUITY REDUCED [None]
